FAERS Safety Report 8614988-6 (Version None)
Quarter: 2012Q3

REPORT INFORMATION
  Report Type: 
  Country: None (occurrence: None)
  Receive Date: 20120823
  Receipt Date: 20120810
  Transmission Date: 20120928
  Serious: Yes (Other)
  Sender: FDA-Public Use
  Company Number: DE-AMGEN-DEUSP2012051838

PATIENT
  Age: 30 Year
  Sex: Female
  Weight: 62 kg

DRUGS (3)
  1. CICLOPOLI                          /00619301/ [Concomitant]
     Indication: ONYCHOMYCOSIS
     Dosage: UNK
     Route: 050
  2. BETAMETHASONE SA [Concomitant]
     Indication: PSORIASIS
     Dosage: UNK
     Route: 061
     Dates: start: 20120106, end: 20120221
  3. ENBREL [Suspect]
     Indication: PSORIASIS
     Dosage: 50 MG, WEEKLY
     Route: 030
     Dates: start: 20120106, end: 20120204

REACTIONS (1)
  - ABORTION SPONTANEOUS [None]
